FAERS Safety Report 21672075 (Version 4)
Quarter: 2023Q1

REPORT INFORMATION
  Report Type: Spontaneous
  Country: US (occurrence: US)
  Receive Date: 20221202
  Receipt Date: 20230322
  Transmission Date: 20230417
  Serious: No
  Sender: FDA-Public Use
  Company Number: US-PHARMING-PHAUS2022000822

PATIENT

DRUGS (3)
  1. RUCONEST [Suspect]
     Active Substance: HUMAN C1-ESTERASE INHIBITOR
     Indication: Hereditary angioedema
     Dosage: 4200 UNITS THREE TIMES A WEEK ON MONDAY, WEDNESDAY AND FRIDAY
     Route: 042
     Dates: start: 20220228
  2. RUCONEST [Suspect]
     Active Substance: HUMAN C1-ESTERASE INHIBITOR
     Indication: Hereditary angioedema
     Dosage: 4200 UNITS THREE TIMES A WEEK ON MONDAY, WEDNESDAY AND FRIDAY
     Route: 042
     Dates: start: 20220308
  3. RUCONEST [Suspect]
     Active Substance: HUMAN C1-ESTERASE INHIBITOR
     Dosage: 4200 UNITS THREE TIMES A WEEK ON MONDAY, WEDNESDAY AND FRIDAY
     Route: 042
     Dates: start: 20220308

REACTIONS (3)
  - COVID-19 [Unknown]
  - Weight decreased [Unknown]
  - Intentional product use issue [Unknown]
